FAERS Safety Report 6817662-1 (Version None)
Quarter: 2010Q3

REPORT INFORMATION
  Report Type: 
  Country: None (occurrence: None)
  Receive Date: 20100706
  Receipt Date: 20100624
  Transmission Date: 20110219
  Serious: Yes (Other)
  Sender: FDA-Public Use
  Company Number: CA-ELI_LILLY_AND_COMPANY-CA201006007334

PATIENT

DRUGS (2)
  1. GEMZAR [Suspect]
     Indication: OVARIAN CANCER
  2. SORAFENIB [Concomitant]
     Indication: OVARIAN CANCER

REACTIONS (1)
  - LARGE INTESTINE PERFORATION [None]
